FAERS Safety Report 22224537 (Version 5)
Quarter: 2023Q4

REPORT INFORMATION
  Report Type: Spontaneous
  Country: FR (occurrence: FR)
  Receive Date: 20230418
  Receipt Date: 20231204
  Transmission Date: 20240110
  Serious: Yes (Death, Other)
  Sender: FDA-Public Use
  Company Number: None

PATIENT
  Age: 43 Year
  Sex: Male
  Weight: 83 kg

DRUGS (6)
  1. PREDNISOLONE [Suspect]
     Active Substance: PREDNISOLONE
     Indication: Prophylaxis of nausea and vomiting
     Dosage: UNK
     Route: 048
     Dates: start: 20200407, end: 20200407
  2. ONDANSETRON HYDROCHLORIDE [Suspect]
     Active Substance: ONDANSETRON HYDROCHLORIDE
     Indication: Prophylaxis of nausea and vomiting
     Dosage: UNK
     Route: 048
     Dates: start: 20200407, end: 20200407
  3. FLUOROURACIL [Suspect]
     Active Substance: FLUOROURACIL
     Indication: Pancreatic carcinoma metastatic
     Dosage: 5600 MG, 1 TOTAL
     Route: 042
     Dates: start: 20200407, end: 20200407
  4. OXALIPLATIN [Suspect]
     Active Substance: OXALIPLATIN
     Indication: Pancreatic carcinoma metastatic
     Dosage: 85 MG, 1 TOTAL
     Route: 042
     Dates: start: 20200407, end: 20200407
  5. CALCIPARINE [Suspect]
     Active Substance: HEPARIN CALCIUM
     Indication: Thrombosis prophylaxis
     Dosage: UNK
     Route: 058
     Dates: start: 20200407
  6. LEVOLEUCOVORIN CALCIUM [Suspect]
     Active Substance: LEVOLEUCOVORIN CALCIUM
     Indication: Pancreatic carcinoma metastatic
     Dosage: 400 MG, 1 TOTAL
     Route: 042
     Dates: start: 20200407, end: 20200407

REACTIONS (3)
  - Renal failure [Fatal]
  - Melaena [Fatal]
  - Haematemesis [Fatal]

NARRATIVE: CASE EVENT DATE: 20200407
